FAERS Safety Report 15397924 (Version 1)
Quarter: 2018Q3

REPORT INFORMATION
  Report Type: Spontaneous
  Country: US (occurrence: US)
  Receive Date: 20180913
  Receipt Date: 20180913
  Transmission Date: 20181010
  Serious: Yes (Disabling)
  Sender: FDA-Public Use
  Company Number: None

PATIENT
  Age: 62 Year
  Sex: Female
  Weight: 101.25 kg

DRUGS (5)
  1. CVS SALINE NASAL MIST 5042831746 [Suspect]
     Active Substance: SODIUM CHLORIDE
     Indication: NASAL DRYNESS
     Dosage: ?          QUANTITY:1 SPRAY(S);?
     Route: 055
     Dates: start: 20180701, end: 20180802
  2. PLAQUENL [Concomitant]
  3. PRILOSEC [Concomitant]
     Active Substance: OMEPRAZOLE MAGNESIUM
  4. SYNTHROID [Concomitant]
     Active Substance: LEVOTHYROXINE SODIUM
  5. MOTRIN [Concomitant]
     Active Substance: IBUPROFEN

REACTIONS (4)
  - Product use issue [None]
  - Application site scab [None]
  - Nasal crusting [None]
  - Rhinalgia [None]

NARRATIVE: CASE EVENT DATE: 20180701
